FAERS Safety Report 17702672 (Version 2)
Quarter: 2020Q3

REPORT INFORMATION
  Report Type: Report from Study
  Country: US (occurrence: US)
  Receive Date: 20200424
  Receipt Date: 20200731
  Transmission Date: 20201102
  Serious: Yes (Hospitalization)
  Sender: FDA-Public Use
  Company Number: US-BAUSCH-BL-2020-011646

PATIENT
  Age: 89 Year
  Sex: Male
  Weight: 55.39 kg

DRUGS (1)
  1. XENAZINE [Suspect]
     Active Substance: TETRABENAZINE
     Indication: HUNTINGTON^S DISEASE
     Dosage: 5 TABLET ONCE A DAY
     Route: 048
     Dates: start: 201706

REACTIONS (2)
  - Illness [Unknown]
  - Overdose [Unknown]
